FAERS Safety Report 6506164-8 (Version None)
Quarter: 2009Q4

REPORT INFORMATION
  Report Type: 
  Country: None (occurrence: None)
  Receive Date: 20091218
  Receipt Date: 20091214
  Transmission Date: 20100525
  Serious: Yes (Hospitalization)
  Sender: FDA-Public Use
  Company Number: US-ELI_LILLY_AND_COMPANY-US200912003395

PATIENT
  Sex: Male

DRUGS (6)
  1. HUMALOG [Suspect]
     Indication: DIABETES MELLITUS
     Dosage: 32 U, 3/D
  2. LANTUS [Concomitant]
     Dosage: 50 U, EACH EVENING
  3. SIMVASTATIN [Concomitant]
     Dosage: 80 MG, UNK
  4. METOPROLOL TARTRATE [Concomitant]
     Dosage: 25 MG, DAILY (1/D)
  5. ASPIRIN [Concomitant]
     Dosage: 81 MG, DAILY (1/D)
  6. ASCORBIC ACID [Concomitant]

REACTIONS (4)
  - CORONARY ARTERY BYPASS [None]
  - HYPOACUSIS [None]
  - VERTIGO [None]
  - WRONG TECHNIQUE IN DRUG USAGE PROCESS [None]
